FAERS Safety Report 4463760-X (Version None)
Quarter: 2004Q3

REPORT INFORMATION
  Report Type: 
  Country: None (occurrence: None)
  Receive Date: 20040929
  Receipt Date: 20040913
  Transmission Date: 20050211
  Serious: Yes (Other)
  Sender: FDA-Public Use
  Company Number: PHFR2004GB03496

PATIENT
  Age: 12 Year
  Sex: Female
  Weight: 30 kg

DRUGS (1)
  1. SCOPODERM TTS (NCH) (HYOSCINE HYDROBROMIDE) TRANS-THERAPEUTIC-SYSTEM [Suspect]
     Indication: DROOLING
     Dosage: HALF A PATCH, TRANSDERMAL
     Route: 062
     Dates: start: 20040701, end: 20040801

REACTIONS (3)
  - OFF LABEL USE [None]
  - SKIN REACTION [None]
  - THERMAL BURN [None]
